FAERS Safety Report 24203628 (Version 1)
Quarter: 2024Q3

REPORT INFORMATION
  Report Type: Spontaneous
  Country: GB (occurrence: GB)
  Receive Date: 20240813
  Receipt Date: 20240813
  Transmission Date: 20241017
  Serious: Yes (Death, Other)
  Sender: ALKEM
  Company Number: GB-ALKEM LABORATORIES LIMITED-GB-ALKEM-2024-18660

PATIENT

DRUGS (4)
  1. METHADONE HYDROCHLORIDE [Interacting]
     Active Substance: METHADONE HYDROCHLORIDE
     Indication: Product used for unknown indication
     Dosage: UNK
     Route: 065
  2. AMITRIPTYLINE [Interacting]
     Active Substance: AMITRIPTYLINE
     Indication: Product used for unknown indication
     Dosage: UNK
     Route: 065
  3. FLUOXETINE [Interacting]
     Active Substance: FLUOXETINE HYDROCHLORIDE
     Indication: Product used for unknown indication
     Dosage: UNK
     Route: 065
  4. VALPROATE SODIUM [Interacting]
     Active Substance: VALPROATE SODIUM
     Indication: Product used for unknown indication
     Dosage: UNK
     Route: 065

REACTIONS (5)
  - Torsade de pointes [Fatal]
  - Drug interaction [Fatal]
  - Respiratory depression [Fatal]
  - Overdose [Fatal]
  - Treatment failure [Unknown]
